FAERS Safety Report 5360959-5 (Version None)
Quarter: 2007Q2

REPORT INFORMATION
  Report Type: 
  Country: None (occurrence: None)
  Receive Date: 20070618
  Receipt Date: 20070613
  Transmission Date: 20071010
  Serious: Yes (Other)
  Sender: FDA-Public Use
  Company Number: JP-BOEHRINGER INGELHEIM PHARMACEUTICALS, INC.-2007-BP-07510YA

PATIENT
  Sex: Male
  Weight: 55 kg

DRUGS (8)
  1. TAMSULOSIN HCL [Suspect]
     Route: 048
     Dates: start: 20070524, end: 20070526
  2. PURSENNID [Concomitant]
     Dates: start: 20070513
  3. GASTER [Concomitant]
     Dates: start: 20070507
  4. SOLU-MEDROL [Concomitant]
     Dates: start: 20070505, end: 20070506
  5. GASTER [Concomitant]
     Dates: start: 20070505, end: 20070507
  6. PREDONINE [Concomitant]
     Dates: start: 20070510
  7. NU-LOTAN [Concomitant]
     Dates: start: 20070507
  8. KETOPROFEN [Concomitant]
     Dates: start: 20070510

REACTIONS (2)
  - HEPATIC FUNCTION ABNORMAL [None]
  - URTICARIA [None]
